FAERS Safety Report 9208891 (Version 1)
Quarter: 2013Q2

REPORT INFORMATION
  Report Type: Spontaneous
  Country: US (occurrence: None)
  Receive Date: 20130404
  Receipt Date: 20130404
  Transmission Date: 20140414
  Serious: Yes (Death)
  Sender: FDA-Public Use
  Company Number: None

PATIENT
  Age: 54 Year
  Sex: Male
  Weight: 90.72 kg

DRUGS (1)
  1. FUROSEMIDE [Suspect]
     Indication: OEDEMA
     Dosage: 100 MG DAILY IV?DAILY FOR 4 MONTHS
     Route: 042

REACTIONS (2)
  - Product quality issue [None]
  - Infection [None]
